FAERS Safety Report 14176385 (Version 2)
Quarter: 2017Q4

REPORT INFORMATION
  Report Type: Report from Study
  Country: AU (occurrence: AU)
  Receive Date: 20171109
  Receipt Date: 20171128
  Transmission Date: 20180321
  Serious: Yes (Other)
  Sender: FDA-Public Use
  Company Number: AU-REGENERON PHARMACEUTICALS, INC.-2017-26148

PATIENT

DRUGS (1)
  1. EYLEA [Suspect]
     Active Substance: AFLIBERCEPT
     Indication: NEOVASCULAR AGE-RELATED MACULAR DEGENERATION
     Dosage: TOTAL OF 3 INJECTIONS SO FAR
     Route: 031
     Dates: start: 20160619

REACTIONS (4)
  - Depression [Not Recovered/Not Resolved]
  - Injury corneal [Unknown]
  - Visual impairment [Unknown]
  - Cataract operation [Unknown]

NARRATIVE: CASE EVENT DATE: 201606
